FAERS Safety Report 6182335-8 (Version None)
Quarter: 2009Q2

REPORT INFORMATION
  Report Type: 
  Country: None (occurrence: None)
  Receive Date: 20090505
  Receipt Date: 20090423
  Transmission Date: 20091009
  Serious: No
  Sender: FDA-Public Use
  Company Number: 2009AP001663

PATIENT

DRUGS (2)
  1. SERTRALINE HYDROCHLORIDE [Suspect]
     Dosage: 150 MG; TRPL
     Route: 064
  2. ABILIFY [Suspect]
     Dosage: 15 MG; QD TRPL
     Route: 064

REACTIONS (4)
  - ABORTION INDUCED [None]
  - CHROMOSOME ANALYSIS ABNORMAL [None]
  - DRUG EXPOSURE DURING PREGNANCY [None]
  - FOETAL MALFORMATION [None]
